FAERS Safety Report 8621714-3 (Version None)
Quarter: 2012Q3

REPORT INFORMATION
  Report Type: 
  Country: None (occurrence: None)
  Receive Date: 20120821
  Receipt Date: 20120821
  Transmission Date: 20120928
  Serious: Yes (Hospitalization)
  Sender: FDA-Public Use
  Company Number: None

PATIENT
  Sex: Female
  Weight: 79.83 kg

DRUGS (3)
  1. FLUOROURACIL [Suspect]
     Dosage: 720 MG
     Dates: end: 20060511
  2. LEUCOVORIN CALCIUM [Suspect]
     Dosage: 720 MG
     Dates: end: 20060511
  3. ELOXATIN [Suspect]
     Dosage: 153 MG
     Dates: end: 20060511

REACTIONS (1)
  - CEREBROVASCULAR ACCIDENT [None]
